FAERS Safety Report 21001425 (Version 1)
Quarter: 2022Q2

REPORT INFORMATION
  Report Type: Report from Study
  Country: US (occurrence: US)
  Receive Date: 20220624
  Receipt Date: 20220624
  Transmission Date: 20220720
  Serious: Yes (Hospitalization)
  Sender: FDA-Public Use
  Company Number: US-GILEAD-2022-0586063

PATIENT
  Sex: Male

DRUGS (8)
  1. AZTREONAM LYSINE [Suspect]
     Active Substance: AZTREONAM LYSINE
     Indication: Hypogammaglobulinaemia
     Dosage: 75 MG, TID FOR 28 DAYS ON AND 28 DAYS OFF
     Route: 055
  2. HIZENTRA [Concomitant]
     Active Substance: HUMAN IMMUNOGLOBULIN G
  3. SYNTHROID [Concomitant]
     Active Substance: LEVOTHYROXINE SODIUM
  4. APIDRA [Concomitant]
     Active Substance: INSULIN GLULISINE
  5. NORDITROPIN [Concomitant]
     Active Substance: SOMATROPIN
  6. .ALPHA.-TOCOPHEROL [Concomitant]
     Active Substance: .ALPHA.-TOCOPHEROL
  7. VITAMIN D NOS [Concomitant]
     Active Substance: VITAMIN D NOS
  8. VFEND [Concomitant]
     Active Substance: VORICONAZOLE

REACTIONS (2)
  - Fungal infection [Recovered/Resolved]
  - COVID-19 [Recovered/Resolved]

NARRATIVE: CASE EVENT DATE: 20210101
